FAERS Safety Report 4361409-8 (Version None)
Quarter: 2004Q2

REPORT INFORMATION
  Report Type: 
  Country: None (occurrence: None)
  Receive Date: 20040519
  Receipt Date: 20040519
  Transmission Date: 20050107
  Serious: Yes (Hospitalization)
  Sender: FDA-Public Use
  Company Number: None

PATIENT
  Age: 56 Year
  Sex: Female
  Weight: 82.7 kg

DRUGS (5)
  1. GEMZAR [Suspect]
     Indication: BREAST CANCER METASTATIC
     Dosage: 1000 MG/M2 IV D 1 + 8 Q 21 D
     Route: 042
     Dates: start: 20040325, end: 20040513
  2. NAVELBINE [Suspect]
     Indication: BREAST CANCER METASTATIC
     Dosage: 25 MG/M2 IV D 1 + 8 Q 21 D
     Route: 042
     Dates: start: 20040325, end: 20040513
  3. ULTRACET [Concomitant]
  4. ZYRTEC [Concomitant]
  5. ARANESP [Concomitant]

REACTIONS (12)
  - CELLULITIS [None]
  - DEEP VEIN THROMBOSIS [None]
  - DYSPNOEA [None]
  - ERYTHEMA [None]
  - FATIGUE [None]
  - HAEMATOCRIT DECREASED [None]
  - HAEMOGLOBIN DECREASED [None]
  - NEUTROPHIL COUNT DECREASED [None]
  - PAIN IN EXTREMITY [None]
  - PITTING OEDEMA [None]
  - PLATELET COUNT DECREASED [None]
  - WHITE BLOOD CELL COUNT DECREASED [None]
